FAERS Safety Report 8381767-7 (Version None)
Quarter: 2012Q2

REPORT INFORMATION
  Report Type: 
  Country: None (occurrence: None)
  Receive Date: 20120524
  Receipt Date: 20120516
  Transmission Date: 20120825
  Serious: Yes (Hospitalization)
  Sender: FDA-Public Use
  Company Number: US-AMGEN-USASP2012018991

PATIENT
  Age: 68 Year
  Sex: Female
  Weight: 58.503 kg

DRUGS (17)
  1. PREDNISONE [Concomitant]
     Dosage: 20 MG BY MOUTH DAILY.
     Route: 048
  2. SIMETHICONE [Concomitant]
     Dosage: 500 MG BY MOUTH TWICE DAILY AS NEEDED
     Route: 048
  3. TYLENOL (CAPLET) [Concomitant]
     Dosage: 500 MG P.O. Q. 6 HOURS P. R.N
     Route: 048
  4. VALTREX [Concomitant]
     Dosage: 500 MG, QD
     Route: 048
  5. ENBREL [Suspect]
     Indication: RHEUMATOID ARTHRITIS
     Dosage: 50 MG, QWK
     Route: 058
     Dates: start: 20071217, end: 20120312
  6. COMPAZINE [Concomitant]
     Dosage: 10 MG, FOUR TIMES DAILY AS NEEDED
     Route: 048
  7. FOLIC ACID [Concomitant]
     Dosage: 1 MG, QD
     Route: 048
  8. PROTONIX [Concomitant]
     Dosage: 20 MG, QD
     Route: 048
  9. CALCIUM WITH VITAMIN D             /00944201/ [Concomitant]
     Dosage: 600 MG/200 INTERNATIONAL UNITS TWICE DAILY.
     Route: 048
  10. ACETAMINOPHEN AND HYDROCODONE BITARTRATE [Concomitant]
     Dosage: 500 MG-5 MG 1 P.O. Q. 4 HOURS P.R.N.
     Route: 048
  11. ZOFRAN [Concomitant]
     Dosage: 8 MG P.O. Q. 8 HOURS P.R.N.
     Route: 048
  12. MAGNESIUM [Concomitant]
     Dosage: UNK
  13. NEUPOGEN [Concomitant]
  14. MARINOL                            /00003301/ [Concomitant]
     Dosage: 2.5 MG, AT BEDTIME AS NEEDED
     Route: 048
  15. MULTI-VITAMINS [Concomitant]
     Dosage: 1BY MOUTH DAILY
     Route: 048
  16. ATIVAN [Concomitant]
     Dosage: 1 MG, THREE TIMES DAILY AS NEEDED
     Route: 048
  17. OMEGA 3                            /06852001/ [Concomitant]
     Dosage: 1 000 MG BY MOUTH THREE TIMES DAILY
     Route: 048

REACTIONS (7)
  - METASTASES TO ABDOMINAL CAVITY [None]
  - THYROID NEOPLASM [None]
  - UPPER RESPIRATORY TRACT INFECTION [None]
  - HYDRONEPHROSIS [None]
  - METASTASES TO PELVIS [None]
  - OVARIAN CANCER STAGE III [None]
  - VULVOVAGINAL CANDIDIASIS [None]
